FAERS Safety Report 19451932 (Version 1)
Quarter: 2021Q2

REPORT INFORMATION
  Report Type: Spontaneous
  Country: FR (occurrence: FR)
  Receive Date: 20210623
  Receipt Date: 20210623
  Transmission Date: 20210717
  Serious: Yes (Hospitalization)
  Sender: FDA-Public Use
  Company Number: FR-TEVA-2021-FR-1923847

PATIENT
  Age: 66 Year
  Sex: Female

DRUGS (2)
  1. OFLOXACINE [Suspect]
     Active Substance: OFLOXACIN
     Indication: BACTERIAL INFECTION
     Dosage: 200MGX3 / DAY, 600MG
     Route: 048
     Dates: start: 20210503
  2. RIFADINE [Concomitant]
     Active Substance: RIFAMPIN
     Indication: BACTERIAL INFECTION
     Dosage: 600MGX2 / DAY, 1200MG
     Route: 041
     Dates: start: 20210503, end: 20210511

REACTIONS (2)
  - Urticaria [Recovered/Resolved]
  - Eosinophil count increased [Recovered/Resolved]

NARRATIVE: CASE EVENT DATE: 20210510
